FAERS Safety Report 7256819-5 (Version None)
Quarter: 2011Q1

REPORT INFORMATION
  Report Type: 
  Country: None (occurrence: None)
  Receive Date: 20110129
  Receipt Date: 20100618
  Transmission Date: 20110831
  Serious: No
  Sender: FDA-Public Use
  Company Number: US-ABBOTT-10P-163-0652295-00

PATIENT
  Age: 66 Year
  Sex: Female

DRUGS (10)
  1. DIOVAN [Concomitant]
     Indication: HYPERTENSION
  2. HUMULIN 70 [Concomitant]
     Indication: DIABETES MELLITUS
     Dosage: 1 SHOT IN THE MORNING + 1 SHOT AT NIGHT
  3. HUMIRA [Suspect]
     Indication: PSORIATIC ARTHROPATHY
     Dates: start: 20100602
  4. ASA [Concomitant]
     Indication: PROPHYLAXIS
  5. BENADRYL [Concomitant]
     Indication: INSOMNIA
     Dosage: 2 AT NIGHT
  6. LIPITOR [Concomitant]
     Indication: BLOOD CHOLESTEROL INCREASED
  7. SPIRONOLACTONE [Concomitant]
     Indication: PRODUCT USED FOR UNKNOWN INDICATION
  8. METFORMIN HCL [Concomitant]
     Indication: DIABETES MELLITUS
  9. CARVEDILOL [Concomitant]
     Indication: HYPERTENSION
  10. URSODIOL [Concomitant]
     Indication: LIVER DISORDER

REACTIONS (1)
  - INJECTION SITE PAIN [None]
